FAERS Safety Report 18823626 (Version 1)
Quarter: 2021Q1

REPORT INFORMATION
  Report Type: Spontaneous
  Country: US (occurrence: US)
  Receive Date: 20210201
  Receipt Date: 20210201
  Transmission Date: 20210419
  Serious: No
  Sender: FDA-Public Use
  Company Number: US-ABBVIE-20K-163-3247439-00

PATIENT
  Sex: Female

DRUGS (4)
  1. HUMIRA [Suspect]
     Active Substance: ADALIMUMAB
     Route: 058
     Dates: start: 201912
  2. HUMIRA [Suspect]
     Active Substance: ADALIMUMAB
     Indication: RHEUMATOID ARTHRITIS
     Route: 058
     Dates: start: 2018, end: 201907
  3. KEVZARA [Suspect]
     Active Substance: SARILUMAB
     Indication: RHEUMATOID ARTHRITIS
     Route: 065
     Dates: start: 2019, end: 2019
  4. ENBREL [Suspect]
     Active Substance: ETANERCEPT
     Indication: RHEUMATOID ARTHRITIS
     Route: 065
     Dates: start: 2019, end: 201912

REACTIONS (12)
  - Injection site rash [Not Recovered/Not Resolved]
  - Injection site erythema [Unknown]
  - Injection site papule [Unknown]
  - Injection site rash [Not Recovered/Not Resolved]
  - Injection site papule [Not Recovered/Not Resolved]
  - Injection site pruritus [Unknown]
  - Injection site papule [Unknown]
  - Injection site pruritus [Not Recovered/Not Resolved]
  - Injection site erythema [Unknown]
  - Injection site erythema [Not Recovered/Not Resolved]
  - Injection site pruritus [Unknown]
  - Injection site rash [Not Recovered/Not Resolved]

NARRATIVE: CASE EVENT DATE: 2018
